FAERS Safety Report 23032402 (Version 2)
Quarter: 2025Q1

REPORT INFORMATION
  Report Type: Spontaneous
  Country: MX (occurrence: MX)
  Receive Date: 20231005
  Receipt Date: 20250131
  Transmission Date: 20250409
  Serious: Yes (Other)
  Sender: ASTELLAS
  Company Number: MX-ASTELLAS-2023US029393

PATIENT
  Age: 81 Year
  Sex: Male

DRUGS (2)
  1. XTANDI [Suspect]
     Active Substance: ENZALUTAMIDE
     Indication: Hormone-refractory prostate cancer
     Dosage: 160 MG, ONCE DAILY
     Route: 048
     Dates: start: 20230326, end: 20230825
  2. GABAPENTIN [Concomitant]
     Active Substance: GABAPENTIN
     Indication: Neuropathy peripheral
     Dosage: 75 MG, ONCE DAILY
     Route: 065
     Dates: start: 20230801

REACTIONS (14)
  - Abdominal pain [Recovering/Resolving]
  - Neuropathy peripheral [Not Recovered/Not Resolved]
  - Diarrhoea [Recovering/Resolving]
  - Nausea [Recovering/Resolving]
  - Photopsia [Not Recovered/Not Resolved]
  - Vision blurred [Not Recovered/Not Resolved]
  - Foreign body sensation in eyes [Not Recovered/Not Resolved]
  - Dry eye [Not Recovered/Not Resolved]
  - Mass [Not Recovered/Not Resolved]
  - Eye disorder [Not Recovered/Not Resolved]
  - Eye pain [Not Recovered/Not Resolved]
  - Dermatosis [Not Recovered/Not Resolved]
  - Dizziness [Unknown]
  - Decreased appetite [Unknown]

NARRATIVE: CASE EVENT DATE: 20230626
